FAERS Safety Report 9346055 (Version 2)
Quarter: 2013Q2

REPORT INFORMATION
  Report Type: Report from Study
  Country: CA (occurrence: CA)
  Receive Date: 20130613
  Receipt Date: 20130614
  Transmission Date: 20140414
  Serious: Yes (Death)
  Sender: FDA-Public Use
  Company Number: PHHY2013CA059862

PATIENT
  Sex: Female

DRUGS (3)
  1. ACLASTA [Suspect]
     Indication: OSTEOPOROSIS
     Dosage: UNK
     Route: 042
     Dates: start: 20100615
  2. ACLASTA [Suspect]
     Dosage: UNK
     Route: 042
     Dates: start: 20110419
  3. ACLASTA [Suspect]
     Dosage: UNK
     Route: 042
     Dates: start: 20120416

REACTIONS (2)
  - Respiratory failure [Fatal]
  - Inappropriate schedule of drug administration [Unknown]
